FAERS Safety Report 4389056-2 (Version None)
Quarter: 2004Q2

REPORT INFORMATION
  Report Type: 
  Country: None (occurrence: None)
  Receive Date: 20040628
  Receipt Date: 20040615
  Transmission Date: 20050107
  Serious: Yes (Death)
  Sender: FDA-Public Use
  Company Number: 207220

PATIENT
  Age: 72 Year
  Sex: Female

DRUGS (2)
  1. ACTILYSE(ALTEPLASE) PWDR + SOLVENT, INFUSION SOLN [Suspect]
     Indication: CEREBROVASCULAR ACCIDENT
     Dosage: 45 MG, UNK, UNK
     Dates: start: 20030304, end: 20030304
  2. ASPIRIN [Concomitant]

REACTIONS (2)
  - COMA [None]
  - QUADRIPLEGIA [None]
